FAERS Safety Report 6570378-1 (Version None)
Quarter: 2010Q1

REPORT INFORMATION
  Report Type: 
  Country: None (occurrence: None)
  Receive Date: 20100204
  Receipt Date: 20100129
  Transmission Date: 20100710
  Serious: Yes (Death, Hospitalization, Other)
  Sender: FDA-Public Use
  Company Number: CO-ROXANE LABORATORIES, INC.-2010-RO-00115RO

PATIENT
  Age: 31 Year
  Sex: Female

DRUGS (13)
  1. MORPHINE [Suspect]
     Indication: ABDOMINAL PAIN
  2. CLOFAZIMINE [Suspect]
     Indication: ERYTHEMA NODOSUM LEPROSUM
     Dosage: 400 MG
  3. CLOFAZIMINE [Suspect]
  4. CLOFAZIMINE [Suspect]
     Dosage: 50 MG
  5. CLOFAZIMINE [Suspect]
  6. ANALGESICS [Concomitant]
     Indication: ABDOMINAL PAIN
  7. ANALGESICS [Concomitant]
     Indication: NAUSEA
  8. ANALGESICS [Concomitant]
     Indication: VOMITING
  9. ANALGESICS [Concomitant]
     Indication: DIARRHOEA
  10. ANTISPASMODICS [Concomitant]
     Indication: ABDOMINAL PAIN
  11. ANTISPASMODICS [Concomitant]
     Indication: NAUSEA
  12. ANTISPASMODICS [Concomitant]
     Indication: VOMITING
  13. ANTISPASMODICS [Concomitant]
     Indication: DIARRHOEA

REACTIONS (6)
  - APATHY [None]
  - DECREASED APPETITE [None]
  - ERYTHEMA NODOSUM LEPROSUM [None]
  - ESCHAR [None]
  - GASTROINTESTINAL DISORDER [None]
  - MAJOR DEPRESSION [None]
